FAERS Safety Report 5866750-5 (Version None)
Quarter: 2008Q3

REPORT INFORMATION
  Report Type: 
  Country: None (occurrence: None)
  Receive Date: 20080821
  Receipt Date: 20080807
  Transmission Date: 20090109
  Serious: Yes (Hospitalization, Other)
  Sender: FDA-Public Use
  Company Number: THYM-11256

PATIENT
  Age: 45 Year
  Sex: Male

DRUGS (10)
  1. THYMOGLOBULIN [Suspect]
     Indication: RENAL AND PANCREAS TRANSPLANT
     Dosage: 75 MG, QD, INTRAVENOUS, QOD, INTRAVENOUS
     Route: 042
     Dates: start: 20040928, end: 20040929
  2. SIROLIMUS (SIROLIMUS) [Suspect]
     Indication: IMMUNOSUPPRESSION
  3. TACROLIMUS [Suspect]
     Indication: IMMUNOSUPPRESSION
  4. BACTRIM [Concomitant]
  5. VALACYCLOVIR HCL [Concomitant]
  6. HEPARIN [Concomitant]
  7. ASPIRIN [Concomitant]
  8. CELLCEPT [Concomitant]
  9. SOLU-MEDROL [Concomitant]
  10. STEROIDS (PREDNISONE OR PREDNISOLONE) [Concomitant]

REACTIONS (1)
  - WOUND EVISCERATION [None]
